FAERS Safety Report 17252139 (Version 1)
Quarter: 2020Q1

REPORT INFORMATION
  Report Type: Spontaneous
  Country: BH (occurrence: BH)
  Receive Date: 20200109
  Receipt Date: 20200109
  Transmission Date: 20200409
  Serious: Yes (Death, Other)
  Sender: FDA-Public Use
  Company Number: BH-PFIZER INC-2020003109

PATIENT
  Age: 57 Year
  Sex: Male

DRUGS (3)
  1. INSULIN [Concomitant]
     Active Substance: INSULIN NOS
     Indication: LIVER DISORDER
     Dosage: UNK
  2. PIPERACILLIN/TAZOBACTAM [Suspect]
     Active Substance: PIPERACILLIN SODIUM\TAZOBACTAM SODIUM
     Indication: SEPSIS
     Dosage: 4.5 G, 3X/DAY
     Route: 042
     Dates: start: 20001001, end: 20001011
  3. VITAMIN K [Concomitant]
     Active Substance: PHYTONADIONE
     Indication: LIVER DISORDER
     Dosage: 10 MG, DAILY

REACTIONS (2)
  - Acute generalised exanthematous pustulosis [Recovered/Resolved]
  - Leukocytosis [Recovered/Resolved]

NARRATIVE: CASE EVENT DATE: 200010
